FAERS Safety Report 10876997 (Version 1)
Quarter: 2015Q1

REPORT INFORMATION
  Report Type: Spontaneous
  Country: NO (occurrence: NO)
  Receive Date: 20150302
  Receipt Date: 20150302
  Transmission Date: 20150721
  Serious: Yes (Other)
  Sender: FDA-Public Use
  Company Number: NO-CIPLA LTD.-2015NO01435

PATIENT
  Age: 40 Day
  Sex: Female
  Weight: 4 kg

DRUGS (2)
  1. TOPIRAMATE. [Suspect]
     Active Substance: TOPIRAMATE
     Dosage: 100 MG, PER DAY TAKEN BY MOTHER
     Route: 063
  2. TOPIRAMATE. [Suspect]
     Active Substance: TOPIRAMATE
     Dosage: 100 MG, PER DAY TAKEN BY MOTHER
     Route: 064

REACTIONS (4)
  - Weight gain poor [Unknown]
  - Exposure during breast feeding [Recovered/Resolved]
  - Diarrhoea [Recovered/Resolved]
  - Foetal exposure during pregnancy [None]
